FAERS Safety Report 17640401 (Version 4)
Quarter: 2020Q3

REPORT INFORMATION
  Report Type: Spontaneous
  Country: US (occurrence: US)
  Receive Date: 20200408
  Receipt Date: 20200703
  Transmission Date: 20201102
  Serious: No
  Sender: FDA-Public Use
  Company Number: US-BIOGEN-2018BI00661979

PATIENT
  Age: 57 Year
  Sex: Male

DRUGS (1)
  1. TYSABRI [Suspect]
     Active Substance: NATALIZUMAB
     Indication: MULTIPLE SCLEROSIS
     Dosage: INFUSED OVER 1 HOUR
     Route: 050
     Dates: start: 20130523, end: 20191105

REACTIONS (8)
  - Stress [Recovered/Resolved]
  - Bipolar disorder [Not Recovered/Not Resolved]
  - Hypersomnia [Unknown]
  - Multiple sclerosis [Unknown]
  - Drug ineffective [Unknown]
  - Multiple sclerosis relapse [Recovered/Resolved with Sequelae]
  - Feeling abnormal [Unknown]
  - Fatigue [Unknown]

NARRATIVE: CASE EVENT DATE: 201710
